FAERS Safety Report 15273731 (Version 1)
Quarter: 2018Q3

REPORT INFORMATION
  Report Type: Spontaneous
  Country: US (occurrence: US)
  Receive Date: 20180813
  Receipt Date: 20180813
  Transmission Date: 20181010
  Serious: No
  Sender: FDA-Public Use
  Company Number: US-TEIKOKU PHARMA USA-TPU2018-00453

PATIENT
  Age: 37 Year
  Sex: Male
  Weight: 115.77 kg

DRUGS (2)
  1. LIDOCAINE PATCH [Suspect]
     Active Substance: LIDOCAINE
     Indication: NERVE INJURY
  2. LIDOCAINE PATCH [Suspect]
     Active Substance: LIDOCAINE
     Indication: NEUROPATHY PERIPHERAL
     Dosage: 1 PATCH APPLIED TO THIGH OR KNEE, KEPT ON UNTIL I TAKE A SHOWER^, FOR ABOUT 12 HOURS. PATCHES ARE US
     Route: 061
     Dates: start: 201807

REACTIONS (2)
  - Product storage error [Unknown]
  - Drug ineffective for unapproved indication [Unknown]

NARRATIVE: CASE EVENT DATE: 201807
